FAERS Safety Report 7791544-3 (Version None)
Quarter: 2011Q4

REPORT INFORMATION
  Report Type: 
  Country: None (occurrence: None)
  Receive Date: 20111003
  Receipt Date: 20110921
  Transmission Date: 20120403
  Serious: Yes (Hospitalization)
  Sender: FDA-Public Use
  Company Number: US-BAYER-201042140NA

PATIENT
  Age: 38 Year
  Sex: Female
  Weight: 57.596 kg

DRUGS (15)
  1. IBUPROFEN (ADVIL) [Concomitant]
     Indication: HEADACHE
     Dosage: 2 TABLETS
  2. SUMATRIPTAN SUCCINATE [Concomitant]
     Dosage: 25 MG, UNK
  3. ASCORBIC ACID [Concomitant]
  4. ACETAMINOPHEN [Concomitant]
     Indication: HEADACHE
     Dosage: 2 TABLETS
  5. ALLEGRA D 24 HOUR [Concomitant]
     Dosage: 12 HOUR TABLET
     Dates: start: 20060919
  6. HYDROCODONE BITARTRATE AND ACETAMINOPHEN [Concomitant]
     Dosage: 5MG/500MG
     Dates: start: 20081021
  7. HEART MEDICATIONS [Concomitant]
  8. NASACORT AQ [Concomitant]
     Dosage: 16.5 GMS
     Dates: start: 20070205
  9. ANTIBIOTICS [Concomitant]
  10. DILTIAZEM [Concomitant]
  11. YASMIN [Suspect]
     Indication: CONTRACEPTION
     Dosage: UNK
     Route: 048
     Dates: start: 20030101, end: 20100601
  12. DROSPIRENONE AND ETHINYL ESTRADIOL [Suspect]
     Indication: CONTRACEPTION
     Dosage: UNK
     Route: 048
     Dates: start: 20100101, end: 20100601
  13. NSAID'S [Concomitant]
  14. FEXOFENADINE [Concomitant]
     Dosage: 60 MG, UNK
  15. MULTI-VITAMIN [Concomitant]
     Dosage: 1 DAILY

REACTIONS (3)
  - BILIARY DYSKINESIA [None]
  - PAIN [None]
  - BILIARY COLIC [None]
